FAERS Safety Report 7617080-2 (Version None)
Quarter: 2011Q3

REPORT INFORMATION
  Report Type: 
  Country: None (occurrence: None)
  Receive Date: 20110718
  Receipt Date: 20110705
  Transmission Date: 20111222
  Serious: Yes (Hospitalization)
  Sender: FDA-Public Use
  Company Number: US-ELI_LILLY_AND_COMPANY-US201106000276

PATIENT
  Age: 69 Year
  Sex: Female

DRUGS (8)
  1. FORTEO [Suspect]
     Indication: OSTEOPOROSIS
     Dosage: 20 UG, QD
     Route: 065
     Dates: start: 20110201, end: 20110401
  2. FORTEO [Suspect]
     Dosage: 20 UG, QOD
     Route: 065
  3. BRIMONIDINE [Concomitant]
  4. ADVAIR DISKUS 100/50 [Concomitant]
     Dosage: UNK, QD
  5. PROAIR HFA [Concomitant]
  6. FORTEO [Suspect]
     Dosage: 20 UG, QOD
     Route: 065
  7. SYNTHROID [Concomitant]
     Dosage: UNK, QD
  8. LUMIGAN [Concomitant]

REACTIONS (7)
  - PNEUMONIA [None]
  - MUSCLE SPASMS [None]
  - FATIGUE [None]
  - BRONCHITIS [None]
  - MEDICATION ERROR [None]
  - MALAISE [None]
  - ASTHENIA [None]
